FAERS Safety Report 15943346 (Version 5)
Quarter: 2020Q2

REPORT INFORMATION
  Report Type: Spontaneous
  Country: US (occurrence: US)
  Receive Date: 20190210
  Receipt Date: 20200424
  Transmission Date: 20200713
  Serious: Yes (Hospitalization)
  Sender: FDA-Public Use
  Company Number: US-BIOGEN-2019BI00693887

PATIENT
  Age: 59 Year
  Sex: Female

DRUGS (3)
  1. TYSABRI [Suspect]
     Active Substance: NATALIZUMAB
     Route: 065
     Dates: start: 2004
  2. TYSABRI [Suspect]
     Active Substance: NATALIZUMAB
     Indication: MULTIPLE SCLEROSIS
     Route: 050
     Dates: start: 20070103, end: 20180605
  3. TYSABRI [Suspect]
     Active Substance: NATALIZUMAB
     Route: 050
     Dates: start: 20190211

REACTIONS (15)
  - Intestinal obstruction [Recovered/Resolved]
  - Renal procedural complication [Unknown]
  - Lower respiratory tract infection [Unknown]
  - Nausea [Recovered/Resolved]
  - Anaesthetic complication neurological [Unknown]
  - Monoparesis [Recovered/Resolved]
  - Clostridium difficile infection [Recovered/Resolved with Sequelae]
  - Wound infection [Recovered/Resolved]
  - Post procedural infection [Recovered/Resolved with Sequelae]
  - Diarrhoea [Recovered/Resolved]
  - Vomiting [Recovered/Resolved]
  - Decreased immune responsiveness [Unknown]
  - Femur fracture [Recovered/Resolved]
  - Exostosis [Recovered/Resolved]
  - Clostridium difficile infection [Unknown]

NARRATIVE: CASE EVENT DATE: 2018
